FAERS Safety Report 4819494-2 (Version None)
Quarter: 2005Q4

REPORT INFORMATION
  Report Type: 
  Country: None (occurrence: None)
  Receive Date: 20051031
  Receipt Date: 20050625
  Transmission Date: 20060501
  Serious: No
  Sender: FDA-Public Use
  Company Number: 2005PV000173

PATIENT
  Age: 55 Year
  Sex: Male
  Weight: 161.0269 kg

DRUGS (10)
  1. SYMLIN [Suspect]
     Indication: DIABETES MELLITUS NON-INSULIN-DEPENDENT
     Dosage: 60 UG; QID; SC
     Route: 058
     Dates: start: 20050623
  2. LANTUS [Concomitant]
  3. GLIPIZIDE ER [Concomitant]
  4. FUROSEMIDE [Concomitant]
  5. POTASSIUM CHLORIDE [Concomitant]
  6. LESCOL XL [Concomitant]
  7. BENAZEPRIL HCL [Concomitant]
  8. TOPAMAX [Concomitant]
  9. CITRUCEL [Concomitant]
  10. ASPIRIN [Concomitant]

REACTIONS (3)
  - BLOOD GLUCOSE INCREASED [None]
  - DECREASED APPETITE [None]
  - NAUSEA [None]
